FAERS Safety Report 7057364-2 (Version None)
Quarter: 2010Q4

REPORT INFORMATION
  Report Type: 
  Country: None (occurrence: None)
  Receive Date: 20101022
  Receipt Date: 20101013
  Transmission Date: 20110411
  Serious: Yes (Hospitalization)
  Sender: FDA-Public Use
  Company Number: FR-JNJFOC-20100700144

PATIENT
  Age: 39 Year
  Sex: Male

DRUGS (2)
  1. REMICADE [Suspect]
     Indication: PSORIASIS
     Route: 042
  2. ANTI-FLU VACCINE [Suspect]
     Indication: INFLUENZA

REACTIONS (3)
  - ARTHRALGIA [None]
  - DIARRHOEA [None]
  - POLYURIA [None]
